FAERS Safety Report 9236806 (Version 2)
Quarter: 2013Q2

REPORT INFORMATION
  Report Type: Spontaneous
  Country: US (occurrence: US)
  Receive Date: 20130417
  Receipt Date: 20130516
  Transmission Date: 20140414
  Serious: Yes (Other)
  Sender: FDA-Public Use
  Company Number: US-009507513-1304USA005553

PATIENT
  Age: 1 Year
  Sex: Female
  Weight: 9.98 kg

DRUGS (1)
  1. COPPERTONE WATER BABIES FOAMIN LOTION SPF-75+ [Suspect]
     Indication: PROPHYLAXIS
     Dosage: UNK, UNKNOWN
     Route: 061
     Dates: start: 20130409

REACTIONS (6)
  - Anaphylactic reaction [Recovered/Resolved]
  - Swelling face [Recovered/Resolved]
  - Nasal oedema [Recovered/Resolved]
  - Eye swelling [Recovered/Resolved]
  - Rhinorrhoea [Recovered/Resolved]
  - Accidental exposure to product [Unknown]
